FAERS Safety Report 8136491-2 (Version None)
Quarter: 2012Q1

REPORT INFORMATION
  Report Type: 
  Country: None (occurrence: None)
  Receive Date: 20120214
  Receipt Date: 20120131
  Transmission Date: 20120608
  Serious: Yes (Hospitalization)
  Sender: FDA-Public Use
  Company Number: US-ROCHE-1035910

PATIENT
  Sex: Male

DRUGS (7)
  1. BYSTOLIC [Concomitant]
  2. REMERON [Concomitant]
  3. OXYCONTIN [Concomitant]
     Dates: start: 20120126
  4. FERROUS SULFATE TAB [Concomitant]
  5. VEMURAFENIB [Suspect]
     Indication: METASTATIC MALIGNANT MELANOMA
     Dosage: LAST DOSE PRIOR TO SAE ON 24 JAN 2012
     Route: 048
     Dates: start: 20120118
  6. LASIX [Concomitant]
  7. VEMURAFENIB [Suspect]

REACTIONS (2)
  - PAIN [None]
  - ANAEMIA [None]
